FAERS Safety Report 24105296 (Version 1)
Quarter: 2024Q3

REPORT INFORMATION
  Report Type: Report from Study
  Country: CA (occurrence: CA)
  Receive Date: 20240717
  Receipt Date: 20240717
  Transmission Date: 20241017
  Serious: Yes (Death)
  Sender: MYLAN
  Company Number: CA-MYLANLABS-2024M1064889

PATIENT
  Sex: Female

DRUGS (1)
  1. CLOZAPINE [Suspect]
     Active Substance: CLOZAPINE
     Indication: Schizophrenia
     Dosage: 2.75 DOSAGE FORM, PM (AT NIGHT, START DATE ON CLOZAPINE IS ON OR ABOUT 07-JUL-2014)
     Route: 065
     Dates: start: 201407

REACTIONS (2)
  - Myocardial infarction [Fatal]
  - Chest pain [Unknown]
